FAERS Safety Report 7415852-0 (Version None)
Quarter: 2011Q2

REPORT INFORMATION
  Report Type: 
  Country: None (occurrence: None)
  Receive Date: 20110414
  Receipt Date: 20110317
  Transmission Date: 20111010
  Serious: No
  Sender: FDA-Public Use
  Company Number: US-B.I. PHARMACEUTICALS,INC./RIDGEFIELD-2011-BP-08526BP

PATIENT
  Sex: Female

DRUGS (3)
  1. PRADAXA [Suspect]
     Indication: ATRIAL FIBRILLATION
     Dosage: 300 MG
     Route: 048
     Dates: start: 20110304
  2. SOTALOL HCL [Concomitant]
     Indication: ATRIAL FIBRILLATION
  3. LEVAQUIN [Concomitant]

REACTIONS (3)
  - PARAESTHESIA [None]
  - BLOOD PRESSURE DECREASED [None]
  - DIZZINESS [None]
